FAERS Safety Report 25391644 (Version 1)
Quarter: 2025Q2

REPORT INFORMATION
  Report Type: Report from Study
  Country: US (occurrence: US)
  Receive Date: 20250603
  Receipt Date: 20250603
  Transmission Date: 20250716
  Serious: Yes (Hospitalization, Other)
  Sender: TAKEDA
  Company Number: US-TAKEDA-2025TUS046401

PATIENT
  Age: 59 Year
  Sex: Male
  Weight: 43.5 kg

DRUGS (16)
  1. MARIBAVIR [Suspect]
     Active Substance: MARIBAVIR
     Indication: Cytomegalovirus infection
     Dosage: 400 MILLIGRAM, BID
     Dates: start: 20250427
  2. MARIBAVIR [Suspect]
     Active Substance: MARIBAVIR
     Indication: Cytomegalovirus colitis
     Dosage: 400 MILLIGRAM, BID
     Dates: start: 20250501
  3. MARIBAVIR [Suspect]
     Active Substance: MARIBAVIR
     Indication: Viraemia
  4. TACROLIMUS [Suspect]
     Active Substance: TACROLIMUS
     Indication: Transplant
     Dosage: 1 MILLIGRAM, BID
     Dates: start: 1999
  5. TACROLIMUS [Suspect]
     Active Substance: TACROLIMUS
     Dosage: 3 MILLIGRAM, BID
  6. CLOPIDOGREL [Concomitant]
     Active Substance: CLOPIDOGREL BISULFATE
     Indication: Myocardial infarction
     Dosage: 7.5 MILLIGRAM, QD
     Dates: start: 20240815
  7. PANTOPRAZOLE [Concomitant]
     Active Substance: PANTOPRAZOLE
     Indication: Gastrooesophageal reflux disease
     Dosage: 90 MILLIGRAM, BID
     Dates: start: 20240716
  8. OXYBUTYNIN [Concomitant]
     Active Substance: OXYBUTYNIN
     Indication: Hypertonic bladder
     Dosage: 5 MILLIGRAM, BID
     Dates: start: 20240927
  9. EZETIMIBE [Concomitant]
     Active Substance: EZETIMIBE
     Indication: Blood cholesterol increased
     Dosage: 10 MILLIGRAM, QD
     Dates: start: 20250513
  10. TAMSULOSIN [Concomitant]
     Active Substance: TAMSULOSIN
     Indication: Micturition urgency
     Dosage: 0.4 MILLIGRAM, BID
     Dates: start: 20250428
  11. ATORVASTATIN [Concomitant]
     Active Substance: ATORVASTATIN
     Indication: Blood cholesterol increased
     Dosage: 40 MILLIGRAM, QD
     Dates: start: 20240401
  12. PREDNISOLONE [Concomitant]
     Active Substance: PREDNISOLONE
     Indication: Transplant
     Dosage: 5 MILLIGRAM, QD
     Dates: start: 1999
  13. ISOSORBIDE MONONITRATE [Concomitant]
     Active Substance: ISOSORBIDE MONONITRATE
     Indication: Coronary artery disease
     Dosage: 60 MILLIGRAM, BID
     Dates: start: 20010708
  14. FINASTERIDE [Concomitant]
     Active Substance: FINASTERIDE
     Indication: Prostatomegaly
     Dosage: 5 MILLIGRAM, QD
     Dates: start: 20011216
  15. METOPROLOL [Concomitant]
     Active Substance: METOPROLOL
     Indication: Coronary artery disease
     Dosage: 50 MILLIGRAM, BID
     Dates: start: 20250310
  16. MYCOPHENOLATE SODIUM [Concomitant]
     Active Substance: MYCOPHENOLATE SODIUM
     Indication: Transplant
     Dosage: 360 MILLIGRAM, BID
     Dates: start: 20240628

REACTIONS (5)
  - Blood creatine increased [Recovered/Resolved]
  - Gastrointestinal haemorrhage [Unknown]
  - Acute myocardial infarction [Unknown]
  - Drug level increased [Recovered/Resolved]
  - Dysgeusia [Not Recovered/Not Resolved]

NARRATIVE: CASE EVENT DATE: 20250506
